FAERS Safety Report 23053637 (Version 1)
Quarter: 2023Q4

REPORT INFORMATION
  Report Type: Spontaneous
  Country: ES (occurrence: ES)
  Receive Date: 20231011
  Receipt Date: 20231011
  Transmission Date: 20240109
  Serious: Yes (Life-Threatening, Hospitalization)
  Sender: FDA-Public Use
  Company Number: None

PATIENT
  Age: 25 Year
  Sex: Female

DRUGS (4)
  1. TAFINLAR [Suspect]
     Active Substance: DABRAFENIB MESYLATE
     Indication: Malignant melanoma
     Dosage: UNK
     Route: 048
     Dates: start: 20230317, end: 20230824
  2. MEKINIST [Suspect]
     Active Substance: TRAMETINIB DIMETHYL SULFOXIDE
     Indication: Malignant melanoma
     Dosage: UNK
     Route: 048
     Dates: start: 20230317, end: 20230824
  3. OPDIVO [Suspect]
     Active Substance: NIVOLUMAB
     Indication: Malignant melanoma
     Dosage: 1 MG/KG, ONCE/SINGLE
     Route: 042
     Dates: start: 20230831, end: 20230831
  4. YERVOY [Suspect]
     Active Substance: IPILIMUMAB
     Indication: Malignant melanoma
     Dosage: 3 MG/KG, ONCE/SINGLE
     Route: 042
     Dates: start: 20230831, end: 20230831

REACTIONS (2)
  - Immune-mediated nephritis [Recovered/Resolved]
  - Immune-mediated myocarditis [Recovering/Resolving]

NARRATIVE: CASE EVENT DATE: 20230908
